FAERS Safety Report 13152362 (Version 4)
Quarter: 2017Q3

REPORT INFORMATION
  Report Type: Report from Study
  Country: DE (occurrence: DE)
  Receive Date: 20170125
  Receipt Date: 20170713
  Transmission Date: 20171127
  Serious: Yes (Other)
  Sender: FDA-Public Use
  Company Number: DE-TAKEDA-2017TUS001594

PATIENT
  Age: 68 Year
  Sex: Female

DRUGS (6)
  1. COLESTYRAMIN [Concomitant]
     Dosage: UNK
  2. MAGNESIUM DIASPORAL                /00434501/ [Concomitant]
     Dosage: UNK
  3. METAMIZOL                          /06276702/ [Concomitant]
     Active Substance: METAMIZOLE
     Dosage: 500 MG, UNK
  4. KALINOR-BRAUSETABLETTEN [Concomitant]
     Active Substance: POTASSIUM CARBONATE\POTASSIUM CITRATE
     Dosage: UNK
  5. VEDOLIZUMAB [Suspect]
     Active Substance: VEDOLIZUMAB
     Indication: PRODUCT USED FOR UNKNOWN INDICATION
     Dosage: UNK
     Route: 042
     Dates: start: 20170109
  6. DEKRISTOL [Concomitant]
     Active Substance: CHOLECALCIFEROL
     Dosage: UNK

REACTIONS (1)
  - Lupus-like syndrome [Recovered/Resolved]

NARRATIVE: CASE EVENT DATE: 20170116
